FAERS Safety Report 25119614 (Version 1)
Quarter: 2025Q1

REPORT INFORMATION
  Report Type: Spontaneous
  Country: IT (occurrence: IT)
  Receive Date: 20250325
  Receipt Date: 20250325
  Transmission Date: 20250408
  Serious: Yes (Other)
  Sender: BEIGENE
  Company Number: IT-ROCHE-10000234618

PATIENT
  Age: 65 Year

DRUGS (4)
  1. BRUKINSA [Suspect]
     Active Substance: ZANUBRUTINIB
     Indication: Follicular lymphoma
     Route: 065
  2. OBINUTUZUMAB [Suspect]
     Active Substance: OBINUTUZUMAB
     Indication: Follicular lymphoma
     Route: 065
  3. OBINUTUZUMAB [Suspect]
     Active Substance: OBINUTUZUMAB
     Route: 065
  4. BENDAMUSTINE [Concomitant]
     Active Substance: BENDAMUSTINE

REACTIONS (2)
  - Spontaneous haemorrhage [Unknown]
  - Disease progression [Unknown]
